FAERS Safety Report 5459402-7 (Version None)
Quarter: 2007Q3

REPORT INFORMATION
  Report Type: 
  Country: None (occurrence: None)
  Receive Date: 20070919
  Receipt Date: 20070910
  Transmission Date: 20080115
  Serious: Yes (Other)
  Sender: FDA-Public Use
  Company Number: US-JNJFOC-20070902133

PATIENT
  Sex: Female
  Weight: 63.5 kg

DRUGS (2)
  1. FENTANYL TRANSDERMAL SYSTEM [Suspect]
     Indication: BACK PAIN
     Dosage: 2X 50UG/HR PATCHES AND 1X 25UG/HR PATCH
     Route: 062
  2. PROTONIX [Concomitant]
     Indication: GASTROOESOPHAGEAL REFLUX DISEASE
     Route: 048

REACTIONS (6)
  - DEVICE LEAKAGE [None]
  - DYSPHAGIA [None]
  - PAIN [None]
  - PALPITATIONS [None]
  - POSTNASAL DRIP [None]
  - SOMNOLENCE [None]
